FAERS Safety Report 9525376 (Version 2)
Quarter: 2013Q4

REPORT INFORMATION
  Report Type: Spontaneous
  Country: FR (occurrence: FR)
  Receive Date: 20130916
  Receipt Date: 20131016
  Transmission Date: 20140711
  Serious: Yes (Hospitalization, Disabling)
  Sender: FDA-Public Use
  Company Number: FR-PFIZER INC-2013260429

PATIENT
  Age: 58 Year
  Sex: Female

DRUGS (3)
  1. TYGACIL [Suspect]
     Indication: OSTEITIS
     Dosage: 50 MG, 2X/DAY
     Route: 042
     Dates: start: 20100408, end: 20100702
  2. TIENAM [Suspect]
     Indication: OSTEITIS
     Dosage: 500 MG, 2X/DAY
     Route: 042
     Dates: start: 20100408, end: 20100709
  3. FOSFOCINA [Suspect]
     Indication: OSTEITIS
     Dosage: 4 G, 4X/DAY
     Route: 042
     Dates: start: 20100408, end: 20100702

REACTIONS (1)
  - Peripheral sensorimotor neuropathy [Unknown]
